FAERS Safety Report 18822075 (Version 1)
Quarter: 2021Q1

REPORT INFORMATION
  Report Type: Spontaneous
  Country: US (occurrence: US)
  Receive Date: 20210202
  Receipt Date: 20210202
  Transmission Date: 20210419
  Serious: Yes (Hospitalization)
  Sender: FDA-Public Use
  Company Number: US-ELI_LILLY_AND_COMPANY-US202101009506

PATIENT
  Age: 52 Year
  Sex: Male
  Weight: 88.9 kg

DRUGS (1)
  1. BAMLANIVIMAB 700MG [Suspect]
     Active Substance: BAMLANIVIMAB
     Indication: COVID-19
     Dosage: 700 MG, SINGLE
     Route: 042
     Dates: start: 20210112, end: 20210112

REACTIONS (5)
  - Pyrexia [Recovered/Resolved]
  - Leukopenia [Unknown]
  - Cough [Unknown]
  - Acute kidney injury [Unknown]
  - Hyponatraemia [Unknown]

NARRATIVE: CASE EVENT DATE: 20210114
